FAERS Safety Report 9379001 (Version 3)
Quarter: 2013Q3

REPORT INFORMATION
  Report Type: Spontaneous
  Country: US (occurrence: US)
  Receive Date: 20130702
  Receipt Date: 20130808
  Transmission Date: 20140515
  Serious: Yes (Death, Other)
  Sender: FDA-Public Use
  Company Number: US-009507513-1306USA014715

PATIENT
  Sex: 0

DRUGS (1)
  1. PEGINTRON [Suspect]
     Dosage: INJECTION 120
     Dates: start: 20130618

REACTIONS (3)
  - Surgery [Fatal]
  - Drug dose omission [Unknown]
  - Product quality issue [Unknown]
